FAERS Safety Report 15378019 (Version 1)
Quarter: 2018Q3

REPORT INFORMATION
  Report Type: Spontaneous
  Country: US (occurrence: US)
  Receive Date: 20180906
  Receipt Date: 20180906
  Transmission Date: 20181010
  Serious: Yes (Other)
  Sender: FDA-Public Use
  Company Number: None

PATIENT
  Sex: Female
  Weight: 89.1 kg

DRUGS (9)
  1. ALPRAZOLAM. [Concomitant]
     Active Substance: ALPRAZOLAM
  2. FLUOXETINE [Concomitant]
     Active Substance: FLUOXETINE HYDROCHLORIDE
  3. PERCOCET [Concomitant]
     Active Substance: ACETAMINOPHEN\OXYCODONE HYDROCHLORIDE
  4. DIPHENOXYLATE?ATROPINE [Concomitant]
     Active Substance: ATROPINE\DIPHENOXYLATE
  5. LORAZEPAM. [Concomitant]
     Active Substance: LORAZEPAM
  6. PROCHLORPERAZINE. [Concomitant]
     Active Substance: PROCHLORPERAZINE
  7. CAPECITABINE. [Suspect]
     Active Substance: CAPECITABINE
     Indication: COLON CANCER
     Route: 048
     Dates: start: 20180807
  8. TRAMADOL. [Concomitant]
     Active Substance: TRAMADOL
  9. TRAZODONE [Concomitant]
     Active Substance: TRAZODONE HYDROCHLORIDE

REACTIONS (1)
  - Blister [None]
